FAERS Safety Report 10580522 (Version 1)
Quarter: 2014Q4

REPORT INFORMATION
  Report Type: Spontaneous
  Country: TR (occurrence: TR)
  Receive Date: 20141113
  Receipt Date: 20141113
  Transmission Date: 20150529
  Serious: Yes (Hospitalization)
  Sender: FDA-Public Use
  Company Number: TR-ACCORD-026994

PATIENT
  Age: 28 Year
  Sex: Male

DRUGS (1)
  1. TRAMADOL/TRAMADOL HYDROCHLORIDE [Suspect]
     Active Substance: TRAMADOL HYDROCHLORIDE
     Indication: PAIN

REACTIONS (8)
  - Tachyphrenia [None]
  - Psychomotor hyperactivity [None]
  - Agitation [None]
  - Sedation [None]
  - Waxy flexibility [None]
  - Mania [Recovered/Resolved]
  - Pneumothorax [None]
  - Hostility [None]
